FAERS Safety Report 4413844-7 (Version None)
Quarter: 2004Q3

REPORT INFORMATION
  Report Type: 
  Country: None (occurrence: None)
  Receive Date: 20040715
  Receipt Date: 20040715
  Transmission Date: 20050211
  Serious: Yes (Hospitalization)
  Sender: FDA-Public Use
  Company Number: None

PATIENT
  Sex: Female
  Weight: 42.3 kg

DRUGS (1)
  1. METHOTREXATE [Suspect]
     Indication: ACUTE LYMPHOCYTIC LEUKAEMIA
     Dosage: 195MG (150MG/M2)
     Dates: start: 20040712

REACTIONS (6)
  - ABDOMINAL PAIN LOWER [None]
  - BLOOD CREATININE ABNORMAL [None]
  - BODY TEMPERATURE INCREASED [None]
  - LOOSE STOOLS [None]
  - ULTRASOUND KIDNEY ABNORMAL [None]
  - VOMITING [None]
